FAERS Safety Report 21398971 (Version 1)
Quarter: 2022Q4

REPORT INFORMATION
  Report Type: Spontaneous
  Country: US (occurrence: US)
  Receive Date: 20221001
  Receipt Date: 20221001
  Transmission Date: 20230113
  Serious: Yes (Life-Threatening, Hospitalization, Other)
  Sender: FDA-Public Use
  Company Number: US-drreddys-LIT/USA/22/0155254

PATIENT
  Age: 53 Year
  Sex: Male

DRUGS (10)
  1. DOCETAXEL [Suspect]
     Active Substance: DOCETAXEL
     Indication: Adenocarcinoma
     Dosage: 6 CYCLES (3 WEEKS/CYCLE)
  2. VINORELBINE [Suspect]
     Active Substance: VINORELBINE TARTRATE
     Indication: Adenocarcinoma
     Dosage: 2 CYCLES (3 WEEKS/CYCLE)
  3. GEMCITABINE [Suspect]
     Active Substance: GEMCITABINE
     Indication: Adenocarcinoma
     Dosage: 2 CYCLES (3 WEEKS/CYCLE)
  4. PEMETREXED DISODIUM [Suspect]
     Active Substance: PEMETREXED DISODIUM
     Indication: Adenocarcinoma
     Dosage: 5 CYCLES (3 WEEKS/CYCLE)
  5. RAMUCIRUMAB [Suspect]
     Active Substance: RAMUCIRUMAB
     Indication: Adenocarcinoma
     Dosage: 3 WEEKS/CYCLE (6 CYCLES)
  6. RAMUCIRUMAB [Suspect]
     Active Substance: RAMUCIRUMAB
     Dosage: 3 WEEKS/CYCLE (5 CYCLES)
  7. CARBOPLATIN [Suspect]
     Active Substance: CARBOPLATIN
     Indication: Adenocarcinoma
     Dosage: 3 WEEKS/CYCLE (5 CYCLES)
  8. CARBOPLATIN [Suspect]
     Active Substance: CARBOPLATIN
     Dosage: 3 WEEKS/CYCLE (5 CYCLES)
  9. PEMBROLIZUMAB [Suspect]
     Active Substance: PEMBROLIZUMAB
     Indication: Adenocarcinoma
     Dosage: 3 WEEKS/CYCLE (5 CYCLES)
  10. PEMBROLIZUMAB [Suspect]
     Active Substance: PEMBROLIZUMAB
     Dosage: 3 WEEKS/CYCLE (5 CYCLES)

REACTIONS (6)
  - Bronchopleural fistula [Recovered/Resolved]
  - Respiratory failure [Recovered/Resolved]
  - Pneumonia [Recovered/Resolved]
  - Sepsis [Recovered/Resolved]
  - Adenocarcinoma [Recovered/Resolved]
  - Drug ineffective for unapproved indication [Unknown]
